FAERS Safety Report 8839508 (Version 1)
Quarter: 2012Q4

REPORT INFORMATION
  Report Type: 
  Country: US (occurrence: US)
  Receive Date: 20121015
  Receipt Date: 20121015
  Transmission Date: 20130627
  Serious: Yes (Other)
  Sender: FDA-Public Use
  Company Number: US-BAYER-2012-105400

PATIENT
  Age: 39 Year
  Sex: Female
  Weight: 123.81 kg

DRUGS (4)
  1. OCELLA [Suspect]
  2. MAXZIDE [Concomitant]
     Dosage: 37.5/25
     Dates: start: 20110921, end: 20120425
  3. LEVOTHROID [Concomitant]
     Dosage: 0.05 mg, UNK
     Dates: start: 20110921, end: 20120315
  4. CITALOPRAM [Concomitant]
     Dosage: 40 mg, UNK
     Dates: start: 20110929, end: 20120425

REACTIONS (1)
  - Deep vein thrombosis [Recovered/Resolved]
